FAERS Safety Report 4923208-5 (Version None)
Quarter: 2006Q1

REPORT INFORMATION
  Report Type: 
  Country: None (occurrence: None)
  Receive Date: 20060127
  Receipt Date: 20051109
  Transmission Date: 20060701
  Serious: Yes (Other)
  Sender: FDA-Public Use
  Company Number: 2005135587

PATIENT
  Age: 76 Year
  Sex: Female
  Weight: 62.5964 kg

DRUGS (5)
  1. LYRICA [Suspect]
     Indication: NEURALGIA
     Dosage: 300 MG +75 MG 2 IN 1 D) ORAL
     Route: 048
     Dates: start: 20050831, end: 20050921
  2. NEURONTIN [Suspect]
     Indication: NERVE INJURY
  3. IBUPROFEN [Concomitant]
  4. LISINOPRIL [Concomitant]
  5. RIBELFAN (SEE IMAGE) [Concomitant]

REACTIONS (4)
  - ASTHENIA [None]
  - DIZZINESS [None]
  - TREMOR [None]
  - WEIGHT INCREASED [None]
